FAERS Safety Report 5410832-9 (Version None)
Quarter: 2007Q3

REPORT INFORMATION
  Report Type: 
  Country: None (occurrence: None)
  Receive Date: 20070810
  Receipt Date: 20070809
  Transmission Date: 20080115
  Serious: Yes (Death, Hospitalization)
  Sender: FDA-Public Use
  Company Number: PHRM2007FR01936

PATIENT
  Age: 70 Year
  Sex: Male

DRUGS (20)
  1. COMTAN [Suspect]
     Indication: PARKINSON'S DISEASE
     Route: 048
  2. FLURBIPROFEN [Suspect]
     Dosage: 50 MG, BID
     Route: 048
     Dates: start: 20070606, end: 20070717
  3. PAROXETINE [Suspect]
     Dosage: 1.5 DF, QD
     Route: 048
     Dates: end: 20070716
  4. SINEMET [Suspect]
     Indication: PARKINSON'S DISEASE
     Route: 048
  5. REQUIP [Suspect]
     Indication: PARKINSON'S DISEASE
     Dosage: 5 MG, QID
     Route: 048
  6. MODOPAR [Suspect]
     Indication: PARKINSON'S DISEASE
     Dosage: 150/600 PER DAY
     Route: 048
  7. OMIX [Suspect]
     Dosage: 0.4 MG, QD
     Route: 048
  8. IMOVANE [Suspect]
     Dosage: 0.5 DF, QD
     Route: 048
  9. MOTILIUM [Suspect]
     Dosage: 20 MG, TID
     Route: 048
  10. PERMIXON [Suspect]
     Dosage: 160 MG, BID
     Route: 048
  11. XANAX [Suspect]
     Dosage: 0.5 MG, BID
     Route: 048
     Dates: start: 20070717
  12. INIPOMP [Suspect]
     Dosage: 1 DF, QD
     Route: 048
  13. ULTIVA [Suspect]
     Route: 042
     Dates: start: 20070718, end: 20070718
  14. PROPOFOL ^FRESENIUS^ [Suspect]
     Route: 042
     Dates: start: 20070718, end: 20070718
  15. ATROPINE [Suspect]
     Route: 042
     Dates: start: 20070718, end: 20070718
  16. LOXEN [Suspect]
     Route: 042
     Dates: start: 20070718, end: 20070718
  17. PERFALGAN [Suspect]
     Route: 042
     Dates: start: 20070718, end: 20070718
  18. PROFENID [Suspect]
     Dosage: 100 MG, ONCE/SINGLE
     Route: 042
     Dates: start: 20070718, end: 20070718
  19. MORPHINE [Suspect]
     Route: 042
     Dates: start: 20070718, end: 20070718
  20. OXACILLIN SODIUM [Suspect]
     Route: 042
     Dates: start: 20070718, end: 20070718

REACTIONS (9)
  - BLEEDING TIME PROLONGED [None]
  - CEREBRAL HAEMATOMA [None]
  - CEREBRAL HAEMORRHAGE [None]
  - COAGULOPATHY [None]
  - DEEP BRAIN STIMULATION [None]
  - GENERAL PHYSICAL HEALTH DETERIORATION [None]
  - INCISION SITE HAEMORRHAGE [None]
  - MYDRIASIS [None]
  - PUPILS UNEQUAL [None]
